FAERS Safety Report 24252595 (Version 1)
Quarter: 2024Q3

REPORT INFORMATION
  Report Type: Spontaneous
  Country: CN (occurrence: CN)
  Receive Date: 20240827
  Receipt Date: 20240827
  Transmission Date: 20241017
  Serious: Yes (Life-Threatening, Hospitalization)
  Sender: GLAXOSMITHKLINE
  Company Number: CN-GLAXOSMITHKLINE-CN2024APC105133

PATIENT

DRUGS (3)
  1. LAMOTRIGINE [Suspect]
     Active Substance: LAMOTRIGINE
     Indication: Anxiety
     Dosage: 50 MG, QD
     Route: 048
     Dates: start: 20240516, end: 20240521
  2. LAMOTRIGINE [Suspect]
     Active Substance: LAMOTRIGINE
     Dosage: 200 MG, QD 4 TABLETS
     Route: 048
     Dates: start: 20240522, end: 20240522
  3. LAMOTRIGINE [Suspect]
     Active Substance: LAMOTRIGINE
     Dosage: 500 MG, QD 10 TABLETS
     Route: 048
     Dates: start: 20240526, end: 20240526

REACTIONS (13)
  - Dizziness [Recovering/Resolving]
  - Abdominal pain [Recovering/Resolving]
  - Musculoskeletal chest pain [Recovering/Resolving]
  - Abdominal pain lower [Recovering/Resolving]
  - Vomiting [Recovering/Resolving]
  - Chest discomfort [Recovering/Resolving]
  - Fatigue [Recovering/Resolving]
  - Dyspnoea [Recovering/Resolving]
  - Hypoaesthesia [Recovering/Resolving]
  - Musculoskeletal stiffness [Recovering/Resolving]
  - Muscle rigidity [Recovering/Resolving]
  - Vertigo [Recovering/Resolving]
  - Intentional overdose [Recovering/Resolving]

NARRATIVE: CASE EVENT DATE: 20240526
